FAERS Safety Report 23097198 (Version 1)
Quarter: 2023Q4

REPORT INFORMATION
  Report Type: Spontaneous
  Country: MV (occurrence: MV)
  Receive Date: 20231023
  Receipt Date: 20231023
  Transmission Date: 20240110
  Serious: Yes (Hospitalization, Other)
  Sender: FDA-Public Use
  Company Number: MV-SUN PHARMACEUTICAL INDUSTRIES LTD-2023R1-414426

PATIENT
  Age: 67 Year
  Sex: Male

DRUGS (1)
  1. ASPIRIN [Suspect]
     Active Substance: ASPIRIN
     Indication: Ischaemic stroke
     Dosage: 150 MILLIGRAM
     Route: 065

REACTIONS (1)
  - Gangrene [Unknown]
